FAERS Safety Report 4320375-1 (Version None)
Quarter: 2004Q1

REPORT INFORMATION
  Report Type: 
  Country: None (occurrence: None)
  Receive Date: 20040317
  Receipt Date: 20040305
  Transmission Date: 20041129
  Serious: Yes (Hospitalization)
  Sender: FDA-Public Use
  Company Number: 2004PK00459

PATIENT
  Age: 82 Year
  Sex: Female

DRUGS (9)
  1. ANTRA [Suspect]
     Dosage: 20 MG DAILY PO
     Route: 048
  2. SORTIS [Suspect]
     Indication: HYPERCHOLESTEROLAEMIA
     Dosage: 20 MG DAILY PO
     Route: 048
     Dates: end: 20040207
  3. ASPIRIN [Concomitant]
  4. TENORMIN [Concomitant]
  5. ZESTORETIC [Concomitant]
  6. TAVANIC [Concomitant]
  7. BISOLVON-LINCTUS [Concomitant]
  8. SERETIDE [Concomitant]
  9. DAFALGAN [Concomitant]

REACTIONS (5)
  - BRONCHOPNEUMONIA [None]
  - DRUG INTERACTION [None]
  - INFLUENZA [None]
  - MYALGIA [None]
  - MYOSITIS [None]
